FAERS Safety Report 7536386-9 (Version None)
Quarter: 2011Q2

REPORT INFORMATION
  Report Type: 
  Country: None (occurrence: None)
  Receive Date: 20110602
  Receipt Date: 20110517
  Transmission Date: 20111010
  Serious: Yes (Hospitalization, Disabling)
  Sender: FDA-Public Use
  Company Number: 2011AP001007

PATIENT
  Age: 70 Year
  Sex: Male

DRUGS (13)
  1. VITAMIN D AND ANALOGUES (VITAMIN D AND ANALOGUES) [Concomitant]
  2. CANDESARTAN CILEXETIL [Concomitant]
  3. FEBUXOSTAT [Suspect]
     Indication: GOUT
     Dosage: 40 MG, PO
     Route: 048
     Dates: start: 20110201, end: 20110309
  4. DARBEPOETIN ALFA (DARBEPOETIN ALFA) [Concomitant]
  5. FERROUR SULFATE (FERROUS SULFATE) [Concomitant]
  6. OMEPRAZOLE [Suspect]
     Indication: PRODUCT USED FOR UNKNOWN INDICATION
     Dosage: 20 MG,PO
     Route: 048
  7. AMLODIPINE [Concomitant]
  8. ATENOLOL [Concomitant]
  9. OMEPRAZOLE [Concomitant]
  10. SIMVASTATIN [Concomitant]
  11. DOXAZOSIN MESYLATE [Concomitant]
  12. FUROSEMIDE [Concomitant]
  13. CALCIUM ACETATE (CALCIUM ACETATE) [Concomitant]

REACTIONS (3)
  - GENERAL PHYSICAL HEALTH DETERIORATION [None]
  - CONDITION AGGRAVATED [None]
  - RENAL FAILURE [None]
